FAERS Safety Report 4505604-3 (Version None)
Quarter: 2004Q4

REPORT INFORMATION
  Report Type: 
  Country: None (occurrence: None)
  Receive Date: 20041018
  Receipt Date: 20040726
  Transmission Date: 20050328
  Serious: No
  Sender: FDA-Public Use
  Company Number: 208064

PATIENT
  Age: 66 Year
  Sex: Female
  Weight: 84.4 kg

DRUGS (11)
  1. XOLAIR [Suspect]
     Indication: ASTHMA
     Dosage: 300 MG, Q4W
     Dates: start: 20040707
  2. IPRATROPUM BROMIDE (IPRATROPIUM BROMIDE) [Concomitant]
  3. ALBUTEROL (ALBUTEROL, ALBUTEROL SULFATE) [Concomitant]
  4. THEO (THEOPHYLLINE) [Concomitant]
  5. ZYRTEC [Concomitant]
  6. NASACORT [Concomitant]
  7. DICYCLOMINE (DICYCLOMINE HYDROCHLORIDE) [Concomitant]
  8. ATARAX [Concomitant]
  9. PREDNISONE [Concomitant]
  10. TRAVATAN (TRAVOPROST) [Concomitant]
  11. ADVAIR (FLUTICASONE PROPIONATE, SALMETEROL XINAFOATE) [Concomitant]

REACTIONS (1)
  - URTICARIA [None]
